FAERS Safety Report 6349100-X (Version None)
Quarter: 2009Q3

REPORT INFORMATION
  Report Type: 
  Country: None (occurrence: None)
  Receive Date: 20090911
  Receipt Date: 20090831
  Transmission Date: 20100115
  Serious: Yes (Hospitalization, Other)
  Sender: FDA-Public Use
  Company Number: FR-PFIZER INC-2009261558

PATIENT
  Age: 55 Year

DRUGS (4)
  1. ANSATIPINE [Suspect]
     Indication: LYMPH NODE TUBERCULOSIS
     Dosage: 450 MG, UNK
     Route: 048
     Dates: start: 20090804, end: 20090806
  2. MYAMBUTOL [Suspect]
     Indication: LYMPH NODE TUBERCULOSIS
     Dosage: 1200 MG, UNK
     Route: 048
     Dates: start: 20090807, end: 20090807
  3. RIFAMPICIN [Concomitant]
  4. ETHAMBUTOL [Concomitant]

REACTIONS (6)
  - ERYTHEMA [None]
  - HYPERSENSITIVITY [None]
  - HYPOTENSION [None]
  - LIVEDO RETICULARIS [None]
  - PYREXIA [None]
  - TRANSAMINASES INCREASED [None]
